FAERS Safety Report 17703072 (Version 1)
Quarter: 2020Q2

REPORT INFORMATION
  Report Type: Report from Study
  Country: US (occurrence: US)
  Receive Date: 20200423
  Receipt Date: 20200423
  Transmission Date: 20200714
  Serious: Yes (Hospitalization)
  Sender: FDA-Public Use
  Company Number: US-ROCHE-2587388

PATIENT
  Age: 55 Year
  Sex: Female
  Weight: 99.77 kg

DRUGS (3)
  1. BEVACIZUMAB. [Suspect]
     Active Substance: BEVACIZUMAB
     Indication: RENAL CELL CARCINOMA
     Dosage: DAY 1 ON EACH 21 DAY CYCLE?DATE OF LAST DOSE PRIOR TO THE ONSSET OF SAE: 02/APR/2020
     Route: 042
     Dates: start: 20200402, end: 20200402
  2. ANTINEOPLASTIC AND IMMUNOMODULATING AGENTS [Suspect]
     Active Substance: UNSPECIFIED INGREDIENT
     Indication: RENAL CELL CARCINOMA
     Dosage: DOSED AT EITHER 20MG/DAY, 30MG/DAY, OR 40MG/DAY?DATE OF LAST DOSE PRIOR TO SAE: 11/APR/2020.
     Route: 048
     Dates: start: 20200402, end: 20200411
  3. ATEZOLIZUMAB. [Suspect]
     Active Substance: ATEZOLIZUMAB
     Indication: RENAL CELL CARCINOMA
     Dosage: ON DAY 1 OF EACH 21-DAY CYCLE?DATE OF LAST DOSE PRIOR TO THE ONSSET OF SAE: 02/APR/2020
     Route: 042
     Dates: start: 20200402

REACTIONS (1)
  - Wound complication [Recovering/Resolving]

NARRATIVE: CASE EVENT DATE: 20200410
